FAERS Safety Report 6231226-2 (Version None)
Quarter: 2009Q2

REPORT INFORMATION
  Report Type: 
  Country: None (occurrence: None)
  Receive Date: 20090611
  Receipt Date: 20090526
  Transmission Date: 20091009
  Serious: Yes (Life-Threatening, Hospitalization)
  Sender: FDA-Public Use
  Company Number: DSA_33727_2009

PATIENT
  Age: 71 Year
  Sex: Female

DRUGS (12)
  1. VASOTEC [Suspect]
     Indication: HYPERTENSION
     Dosage: (2.5 MG QD ORAL)
     Route: 048
     Dates: start: 20000101, end: 20080826
  2. SPIRONOLACTONE [Suspect]
     Indication: HYPERTENSION
     Dosage: (25 MG QD ORAL)
     Route: 048
     Dates: start: 20000101, end: 20080826
  3. ASPIRIN [Suspect]
     Indication: CORONARY ARTERY DISEASE
     Dosage: (100 MG QD ORAL)
     Route: 048
     Dates: start: 20020101, end: 20080826
  4. CANDESARTAN CILEXETIL [Suspect]
     Indication: HYPERTENSION
     Dosage: (8 MG QD ORAL)
     Route: 048
     Dates: start: 20040101, end: 20080828
  5. BISOPROLOL [Concomitant]
  6. FUROSEMIDE [Concomitant]
  7. HYDROMORPHONE HCL [Concomitant]
  8. INSULIN ASPART [Concomitant]
  9. ISOSORBIDE DINITRATE [Concomitant]
  10. LORAZEPAM [Concomitant]
  11. SIMVASTATIN [Concomitant]
  12. INSULIN GLARGINE [Concomitant]

REACTIONS (12)
  - BLOOD CREATININE INCREASED [None]
  - BLOOD UREA INCREASED [None]
  - CONDITION AGGRAVATED [None]
  - CREATININE RENAL CLEARANCE DECREASED [None]
  - DECREASED ACTIVITY [None]
  - DILATATION VENTRICULAR [None]
  - DIZZINESS [None]
  - DRUG INTERACTION [None]
  - DYSPNOEA [None]
  - HYPERKALAEMIA [None]
  - OEDEMA PERIPHERAL [None]
  - RENAL FAILURE CHRONIC [None]
